FAERS Safety Report 14258422 (Version 1)
Quarter: 2017Q4

REPORT INFORMATION
  Report Type: Spontaneous
  Country: US (occurrence: US)
  Receive Date: 20171201
  Receipt Date: 20171201
  Transmission Date: 20180321
  Serious: Yes (Disabling)
  Sender: FDA-Public Use
  Company Number: None

PATIENT
  Sex: Male
  Weight: 20.25 kg

DRUGS (2)
  1. MULTI VIT [Concomitant]
  2. TOPICAL STEROIDS [Suspect]
     Active Substance: UNSPECIFIED INGREDIENT
     Indication: ECZEMA
     Route: 061
     Dates: start: 20121228, end: 20140101

REACTIONS (1)
  - Burns second degree [None]

NARRATIVE: CASE EVENT DATE: 20121228
